FAERS Safety Report 13876356 (Version 1)
Quarter: 2017Q3

REPORT INFORMATION
  Report Type: Spontaneous
  Country: US (occurrence: None)
  Receive Date: 20170814
  Receipt Date: 20170814
  Transmission Date: 20171127
  Serious: No
  Sender: FDA-Public Use
  Company Number: None

PATIENT
  Age: 57 Year
  Sex: Female

DRUGS (1)
  1. HUMIRA [Suspect]
     Active Substance: ADALIMUMAB
     Indication: PSORIASIS
     Dosage: 40MG  INJECT EVERY 2 WEEKS
     Route: 058
     Dates: start: 20160901, end: 20170802

REACTIONS (3)
  - Depression [None]
  - Irritability [None]
  - Erythema [None]

NARRATIVE: CASE EVENT DATE: 20170802
